FAERS Safety Report 11692164 (Version 1)
Quarter: 2015Q4

REPORT INFORMATION
  Report Type: Report from Study
  Country: GB (occurrence: GB)
  Receive Date: 20151103
  Receipt Date: 20151103
  Transmission Date: 20160304
  Serious: Yes (Other)
  Sender: FDA-Public Use
  Company Number: GB-LEO PHARMA-236548

PATIENT
  Age: 76 Year
  Sex: Male
  Weight: 75.2 kg

DRUGS (3)
  1. DAIVOBET [Suspect]
     Active Substance: BETAMETHASONE DIPROPIONATE\CALCIPOTRIENE
     Indication: PSORIASIS
  2. DAIVONEX OINTMENT [Concomitant]
     Active Substance: CALCIPOTRIENE
     Indication: PSORIASIS
  3. DAIVOBET [Suspect]
     Active Substance: BETAMETHASONE DIPROPIONATE\CALCIPOTRIENE
     Indication: PSORIASIS

REACTIONS (4)
  - VIIth nerve paralysis [Recovered/Resolved]
  - Drug administered at inappropriate site [Unknown]
  - Drug prescribing error [Unknown]
  - Diplopia [Recovered/Resolved]
